FAERS Safety Report 9132461 (Version 1)
Quarter: 2013Q1

REPORT INFORMATION
  Report Type: Spontaneous
  Country: US (occurrence: US)
  Receive Date: 20130301
  Receipt Date: 20130301
  Transmission Date: 20140127
  Serious: Yes (Death, Hospitalization)
  Sender: FDA-Public Use
  Company Number: US-GLAXOSMITHKLINE-A1014204A

PATIENT
  Sex: Female

DRUGS (2)
  1. PAXIL [Suspect]
     Indication: DEPRESSION
     Route: 065
     Dates: start: 1996
  2. COUMADIN [Concomitant]
     Indication: THROMBOSIS

REACTIONS (7)
  - Myocardial infarction [Fatal]
  - Self injurious behaviour [Recovering/Resolving]
  - Hallucination [Recovering/Resolving]
  - Anxiety [Recovering/Resolving]
  - Impaired work ability [Recovering/Resolving]
  - Memory impairment [Recovering/Resolving]
  - Adverse event [Unknown]
